FAERS Safety Report 6137152-1 (Version None)
Quarter: 2009Q1

REPORT INFORMATION
  Report Type: 
  Country: None (occurrence: None)
  Receive Date: 20090326
  Receipt Date: 20090326
  Transmission Date: 20090719
  Serious: Yes (Other)
  Sender: FDA-Public Use
  Company Number: None

PATIENT
  Sex: Female
  Weight: 59.8748 kg

DRUGS (1)
  1. KAPIDEX [Suspect]
     Indication: BARRETT'S OESOPHAGUS
     Dosage: ONE CAPSULE A DAY PO
     Route: 048
     Dates: start: 20090306, end: 20090315

REACTIONS (2)
  - HEADACHE [None]
  - HYPERSENSITIVITY [None]
